FAERS Safety Report 6713042-8 (Version None)
Quarter: 2010Q2

REPORT INFORMATION
  Report Type: 
  Country: None (occurrence: None)
  Receive Date: 20100506
  Receipt Date: 20100426
  Transmission Date: 20101027
  Serious: Yes (Hospitalization)
  Sender: FDA-Public Use
  Company Number: ES-SANOFI-AVENTIS-2010SA023961

PATIENT
  Age: 85 Year
  Sex: Male

DRUGS (6)
  1. SEGURIL [Suspect]
     Indication: CARDIAC FAILURE
     Route: 048
     Dates: start: 20020820
  2. SPIRONOLACTONE [Interacting]
     Indication: CARDIAC FAILURE
     Route: 048
     Dates: start: 20081121, end: 20081124
  3. ENALAPRIL MALEATE [Interacting]
     Indication: HYPERTENSION
     Route: 048
     Dates: start: 20030205, end: 20081124
  4. ALDOCUMAR [Concomitant]
     Indication: ATRIAL FIBRILLATION
     Route: 048
     Dates: start: 20081121, end: 20081124
  5. METFORMIN HCL [Concomitant]
     Indication: DIABETES MELLITUS
     Route: 048
     Dates: start: 20041223
  6. BISOPROLOL [Concomitant]
     Indication: ATRIAL FIBRILLATION
     Route: 048
     Dates: start: 20081121, end: 20081124

REACTIONS (3)
  - DRUG INTERACTION [None]
  - HYPERKALAEMIA [None]
  - RENAL FAILURE ACUTE [None]
